FAERS Safety Report 8352372-3 (Version None)
Quarter: 2012Q2

REPORT INFORMATION
  Report Type: 
  Country: None (occurrence: None)
  Receive Date: 20120511
  Receipt Date: 20120503
  Transmission Date: 20120825
  Serious: Yes (Other)
  Sender: FDA-Public Use
  Company Number: BR-BAYER-2012-043716

PATIENT
  Sex: Female

DRUGS (5)
  1. BETASERON [Suspect]
     Indication: RELAPSING-REMITTING MULTIPLE SCLEROSIS
     Dosage: 1 ML, QOD
     Route: 048
     Dates: start: 20110901
  2. LACTOBACILLUS ACID [Concomitant]
     Indication: BOWEL MOVEMENT IRREGULARITY
     Dosage: DAILY DOSE 2 DF
     Route: 048
     Dates: start: 20120301
  3. VITAMIN TAB [Concomitant]
     Indication: VITAMIN SUPPLEMENTATION
     Dosage: 2 DF
     Route: 048
     Dates: start: 20120301
  4. LOVAZA [Concomitant]
     Indication: VITAMIN SUPPLEMENTATION
     Dosage: 6 DF
     Route: 048
     Dates: start: 20120301
  5. BETAJECT COMFORT [Suspect]
     Indication: DEVICE THERAPY

REACTIONS (5)
  - INTESTINAL OBSTRUCTION [None]
  - INJECTION SITE PAIN [None]
  - INJECTION SITE HAEMATOMA [None]
  - CONSTIPATION [None]
  - URINARY TRACT INFECTION [None]
